FAERS Safety Report 13851911 (Version 1)
Quarter: 2017Q3

REPORT INFORMATION
  Report Type: Spontaneous
  Country: US (occurrence: US)
  Receive Date: 20170809
  Receipt Date: 20170809
  Transmission Date: 20171127
  Serious: Yes (Hospitalization)
  Sender: FDA-Public Use
  Company Number: US-ROCHE-463589

PATIENT
  Age: 51 Year
  Sex: Female
  Weight: 52.2 kg

DRUGS (13)
  1. PREMARIN [Concomitant]
     Active Substance: ESTROGENS, CONJUGATED
     Indication: HORMONE REPLACEMENT THERAPY
     Dosage: DRUG NAME REPORTED AS PREMARIN - ESTROGEN 1.25.2.5 ALTERNATING.
     Route: 048
  2. HYOSCYAMINE. [Concomitant]
     Active Substance: HYOSCYAMINE
     Route: 065
  3. ULTRAN [Concomitant]
     Active Substance: PHENAGLYCODOL
     Dosage: FREQ: 1-2 DOSEFORM, QID PRN
     Route: 065
  4. LOTENSIN [Concomitant]
     Active Substance: BENAZEPRIL HYDROCHLORIDE
     Indication: HYPERTENSION
     Route: 048
  5. MIACALCIN [Concomitant]
     Active Substance: CALCITONIN SALMON
     Dosage: NASAL SPRAY, 1 SPRAY IN 1 NOSTRIL DAILY
     Route: 065
  6. SOMA [Concomitant]
     Active Substance: CARISOPRODOL
     Dosage: FREQ: 1 DOSEFORM QID PRN
     Route: 065
  7. PERCOCET [Concomitant]
     Active Substance: ACETAMINOPHEN\OXYCODONE HYDROCHLORIDE
     Dosage: DOSE: 5/325
     Route: 065
  8. NEXIUM [Concomitant]
     Active Substance: ESOMEPRAZOLE MAGNESIUM
     Indication: ABDOMINAL DISCOMFORT
     Route: 048
  9. ALLEGRA [Concomitant]
     Active Substance: FEXOFENADINE HYDROCHLORIDE
     Indication: RHINITIS ALLERGIC
     Route: 048
  10. PHENERGAN [Concomitant]
     Active Substance: PROMETHAZINE HYDROCHLORIDE
     Dosage: FREQ: 1 DOSEFORM Q 6-8 HOURS PRN
     Route: 065
  11. BONIVA [Suspect]
     Active Substance: IBANDRONATE SODIUM
     Indication: OSTEOPOROSIS
     Route: 048
     Dates: start: 20060912, end: 20060915
  12. HYDROCHLOROTHIAZIDE. [Concomitant]
     Active Substance: HYDROCHLOROTHIAZIDE
     Indication: HYPERTENSION
     Route: 048
  13. MOTRIN [Concomitant]
     Active Substance: IBUPROFEN
     Dosage: FREQ: 1 EVERY 8 HOURS PRN
     Route: 065

REACTIONS (2)
  - Muscle spasms [Unknown]
  - Back pain [Unknown]

NARRATIVE: CASE EVENT DATE: 20060915
